FAERS Safety Report 6207152-1 (Version None)
Quarter: 2009Q2

REPORT INFORMATION
  Report Type: 
  Country: None (occurrence: None)
  Receive Date: 20090528
  Receipt Date: 20090519
  Transmission Date: 20091009
  Serious: Yes (Other)
  Sender: FDA-Public Use
  Company Number: FR-GILEAD-2009-0021054

PATIENT

DRUGS (2)
  1. VIREAD [Suspect]
     Indication: HEPATITIS B
  2. LAMIVUDINE [Concomitant]

REACTIONS (1)
  - RHABDOMYOLYSIS [None]
